FAERS Safety Report 8822672 (Version 1)
Quarter: 2012Q4

REPORT INFORMATION
  Report Type: 
  Country: CH (occurrence: CH)
  Receive Date: 20121003
  Receipt Date: 20121003
  Transmission Date: 20130627
  Serious: Yes (Life-Threatening, Hospitalization, Other)
  Sender: FDA-Public Use
  Company Number: CH-009507513-1209CHE002520

PATIENT

DRUGS (3)
  1. REMERON [Suspect]
     Dosage: up to 40 unit, Once
     Route: 048
     Dates: start: 20120505, end: 20120505
  2. LORAZEPAM [Suspect]
     Dosage: up to 20 unit, Once
     Route: 048
     Dates: start: 20120505, end: 20120505
  3. IBUPROFEN [Suspect]
     Dosage: about 10 unit, Once
     Route: 048
     Dates: start: 20120505, end: 20120505

REACTIONS (12)
  - Electrocardiogram QT prolonged [Unknown]
  - Coma [Unknown]
  - Rhabdomyolysis [Unknown]
  - Muscle injury [Unknown]
  - Metabolic acidosis [Unknown]
  - Pneumonia aspiration [Unknown]
  - Hyperkalaemia [Unknown]
  - Compartment syndrome [Unknown]
  - Poisoning [Unknown]
  - Suicide attempt [Recovered/Resolved]
  - Surgery [Unknown]
  - Intentional overdose [Unknown]
